FAERS Safety Report 12508952 (Version 1)
Quarter: 2016Q2

REPORT INFORMATION
  Report Type: Report from Study
  Country: US (occurrence: US)
  Receive Date: 20160629
  Receipt Date: 20160629
  Transmission Date: 20160815
  Serious: Yes (Other)
  Sender: FDA-Public Use
  Company Number: US-SA-2016SA119742

PATIENT
  Sex: Female

DRUGS (1)
  1. LEMTRADA [Suspect]
     Active Substance: ALEMTUZUMAB
     Route: 041
     Dates: start: 201606, end: 201606

REACTIONS (8)
  - Rash [Recovered/Resolved]
  - Dyspnoea [Unknown]
  - Contusion [Unknown]
  - Chills [Unknown]
  - Headache [Unknown]
  - Thrombocytopenia [Unknown]
  - Heart rate increased [Unknown]
  - Pyrexia [Unknown]

NARRATIVE: CASE EVENT DATE: 201606
